FAERS Safety Report 13400294 (Version 1)
Quarter: 2017Q2

REPORT INFORMATION
  Report Type: Report from Study
  Country: None (occurrence: CA)
  Receive Date: 20170404
  Receipt Date: 20170404
  Transmission Date: 20170830
  Serious: Yes (Other)
  Sender: FDA-Public Use
  Company Number: CA-ABBVIE-16K-028-1819987-00

PATIENT
  Sex: Female

DRUGS (2)
  1. HUMIRA [Suspect]
     Active Substance: ADALIMUMAB
     Route: 058
     Dates: start: 201701
  2. HUMIRA [Suspect]
     Active Substance: ADALIMUMAB
     Indication: CROHN^S DISEASE
     Route: 058
     Dates: start: 20080608, end: 201701

REACTIONS (11)
  - Procedural complication [Unknown]
  - Malaise [Not Recovered/Not Resolved]
  - Impaired healing [Unknown]
  - Inappropriate schedule of drug administration [Unknown]
  - Wound complication [Not Recovered/Not Resolved]
  - Abdominal adhesions [Unknown]
  - Rash [Unknown]
  - Intestinal obstruction [Not Recovered/Not Resolved]
  - Stress [Not Recovered/Not Resolved]
  - Post procedural discharge [Unknown]
  - Abdominal hernia [Not Recovered/Not Resolved]

NARRATIVE: CASE EVENT DATE: 2016
